FAERS Safety Report 6450173-4 (Version None)
Quarter: 2009Q4

REPORT INFORMATION
  Report Type: 
  Country: None (occurrence: None)
  Receive Date: 20091123
  Receipt Date: 20091113
  Transmission Date: 20100525
  Serious: Yes (Other)
  Sender: FDA-Public Use
  Company Number: US-ROCHE-665840

PATIENT
  Age: 41 Year
  Sex: Female

DRUGS (4)
  1. XELODA [Suspect]
     Route: 048
     Dates: start: 20090930, end: 20091028
  2. FAMOTIDINE [Concomitant]
  3. COMPAZINE [Concomitant]
     Indication: NAUSEA
     Dosage: NAUSEA MEDICATIONS
  4. ZOFRAN [Concomitant]
     Indication: NAUSEA
     Dosage: NAUSEA MEDICATIONS

REACTIONS (1)
  - FOREIGN BODY [None]
